FAERS Safety Report 5758121-7 (Version None)
Quarter: 2008Q2

REPORT INFORMATION
  Report Type: 
  Country: None (occurrence: None)
  Receive Date: 20080507
  Receipt Date: 20071212
  Transmission Date: 20081010
  Serious: Yes (Hospitalization)
  Sender: FDA-Public Use
  Company Number: 231252J07USA

PATIENT
  Age: 52 Year
  Sex: Female
  Weight: 70.3075 kg

DRUGS (5)
  1. REBIF [Suspect]
     Indication: MULTIPLE SCLEROSIS
     Dosage: 44 MCG, 3 IN 1 WEEKS, SUBCUTANEOUS
     Route: 058
     Dates: start: 20021203
  2. ZOLOFT [Concomitant]
  3. SYNTHROID [Concomitant]
  4. DILANTIN [Concomitant]
  5. DETROL [Concomitant]

REACTIONS (4)
  - FALL [None]
  - MULTIPLE SCLEROSIS RELAPSE [None]
  - URINARY RETENTION [None]
  - URINARY TRACT INFECTION [None]
